FAERS Safety Report 15257720 (Version 4)
Quarter: 2023Q2

REPORT INFORMATION
  Report Type: Spontaneous
  Country: HU (occurrence: HU)
  Receive Date: 20180808
  Receipt Date: 20230519
  Transmission Date: 20230721
  Serious: Yes (Life-Threatening, Hospitalization, Other)
  Sender: FDA-Public Use
  Company Number: PHHY2018HU067462

PATIENT
  Age: 73 Year
  Sex: Female

DRUGS (2)
  1. DICLOFENAC [Suspect]
     Active Substance: DICLOFENAC
     Indication: Pain
     Dosage: UNK
     Route: 062
  2. DICLOFENAC [Suspect]
     Active Substance: DICLOFENAC
     Indication: Foot deformity

REACTIONS (6)
  - Respiratory failure [Recovered/Resolved]
  - Anaphylactic shock [Recovered/Resolved]
  - Haematemesis [Recovered/Resolved]
  - Oesophageal perforation [Recovered/Resolved]
  - Pharyngo-oesophageal diverticulum [Unknown]
  - Mucosal disorder [Unknown]
